FAERS Safety Report 11603769 (Version 1)
Quarter: 2015Q4

REPORT INFORMATION
  Report Type: Spontaneous
  Country: US (occurrence: None)
  Receive Date: 20151006
  Receipt Date: 20151006
  Transmission Date: 20160304
  Serious: No
  Sender: FDA-Public Use
  Company Number: None

PATIENT
  Age: 15 Year
  Sex: Female
  Weight: 99.79 kg

DRUGS (3)
  1. TYLENOL [Concomitant]
     Active Substance: ACETAMINOPHEN
  2. ALUMINUM + MAGNESIUM + SIMETHICONE SUSP [Concomitant]
  3. PROZAC [Suspect]
     Active Substance: FLUOXETINE HYDROCHLORIDE
     Dosage: 1 PILL QAM
     Route: 048
     Dates: start: 20150911, end: 20150914

REACTIONS (1)
  - Weight increased [None]

NARRATIVE: CASE EVENT DATE: 20150914
